FAERS Safety Report 19499514 (Version 1)
Quarter: 2021Q3

REPORT INFORMATION
  Report Type: Spontaneous
  Country: AR (occurrence: AR)
  Receive Date: 20210707
  Receipt Date: 20210707
  Transmission Date: 20211014
  Serious: Yes (Other)
  Sender: FDA-Public Use
  Company Number: AR-AMGEN-ARGSP2021100448

PATIENT
  Age: 14 Year
  Sex: Female

DRUGS (1)
  1. BLINCYTO [Suspect]
     Active Substance: BLINATUMOMAB
     Indication: MINIMAL RESIDUAL DISEASE
     Dosage: 15 MICROGRAM/SQ. METER, QD X 28 DAYS X 2 CYCLES
     Route: 065

REACTIONS (4)
  - Headache [Unknown]
  - Engraft failure [Unknown]
  - Febrile neutropenia [Unknown]
  - Hypokalaemia [Unknown]
